FAERS Safety Report 7369658-1 (Version None)
Quarter: 2011Q1

REPORT INFORMATION
  Report Type: 
  Country: None (occurrence: None)
  Receive Date: 20110317
  Receipt Date: 20110317
  Transmission Date: 20110831
  Serious: No
  Sender: FDA-Public Use
  Company Number: None

PATIENT
  Age: 76 Year
  Sex: Female
  Weight: 79.3795 kg

DRUGS (1)
  1. CIPROFLOXACIN-500MG=DR REDDYS #1 [Suspect]
     Dosage: 500 MG 2 A DAY

REACTIONS (2)
  - RASH GENERALISED [None]
  - PRURITUS [None]
